FAERS Safety Report 8922931 (Version 4)
Quarter: 2013Q2

REPORT INFORMATION
  Report Type: Spontaneous
  Country: US (occurrence: US)
  Receive Date: 20121125
  Receipt Date: 20130410
  Transmission Date: 20140414
  Serious: No
  Sender: FDA-Public Use
  Company Number: US-009507513-1211USA009671

PATIENT
  Age: 56 Year
  Sex: Female

DRUGS (12)
  1. VICTRELIS [Suspect]
     Indication: HEPATITIS C
     Dosage: 800 MG, TID
     Route: 048
     Dates: start: 20111124, end: 20120503
  2. VICTRELIS [Suspect]
     Dosage: 800 MG, TID
     Route: 048
     Dates: start: 20121030
  3. RIBASPHERE [Suspect]
     Dosage: UNK
     Dates: start: 20111124, end: 20120503
  4. RIBASPHERE [Suspect]
     Dosage: UNK
     Dates: start: 2012
  5. PEGASYS [Suspect]
     Dosage: UNK
     Dates: start: 20111124, end: 20120503
  6. PEGASYS [Suspect]
     Dosage: UNK
     Dates: start: 2012
  7. PAXIL [Concomitant]
  8. SOMA [Concomitant]
  9. CLONAZEPAM [Concomitant]
  10. VITAMIN D (UNSPECIFIED) [Concomitant]
  11. ASPIRIN [Concomitant]
     Dosage: 81 MG, UNK
  12. FOLIC ACID [Concomitant]

REACTIONS (6)
  - Dyspnoea [Not Recovered/Not Resolved]
  - Transfusion [Unknown]
  - Fatigue [Not Recovered/Not Resolved]
  - Fatigue [Unknown]
  - Anaemia [Unknown]
  - Rash [Unknown]
